FAERS Safety Report 8589834-X (Version None)
Quarter: 2012Q3

REPORT INFORMATION
  Report Type: 
  Country: None (occurrence: None)
  Receive Date: 20120813
  Receipt Date: 20120801
  Transmission Date: 20120928
  Serious: Yes (Hospitalization)
  Sender: FDA-Public Use
  Company Number: MX-ROCHE-1098109

PATIENT
  Sex: Female
  Weight: 85 kg

DRUGS (3)
  1. LISPRO INSULIN [Concomitant]
     Indication: DIABETES MELLITUS
     Route: 058
  2. MIRCERA [Suspect]
     Route: 058
     Dates: start: 20120101
  3. MIRCERA [Suspect]
     Indication: PRODUCT USED FOR UNKNOWN INDICATION
     Route: 058
     Dates: start: 20110901

REACTIONS (2)
  - DEHYDRATION [None]
  - DIARRHOEA [None]
